FAERS Safety Report 12305564 (Version 1)
Quarter: 2016Q2

REPORT INFORMATION
  Report Type: Spontaneous
  Country: US (occurrence: US)
  Receive Date: 20160426
  Receipt Date: 20160426
  Transmission Date: 20160815
  Serious: Yes (Other)
  Sender: FDA-Public Use
  Company Number: US-SA-2016SA079286

PATIENT
  Age: 54 Year
  Sex: Male

DRUGS (9)
  1. LANTUS SOLOSTAR [Concomitant]
     Active Substance: INSULIN GLARGINE
  2. REGLAN [Concomitant]
     Active Substance: METOCLOPRAMIDE HYDROCHLORIDE
  3. INVOKANA [Concomitant]
     Active Substance: CANAGLIFLOZIN
  4. SOLOSTAR [Concomitant]
     Active Substance: DEVICE
     Dates: start: 201508
  5. SOLOSTAR [Concomitant]
     Active Substance: DEVICE
  6. TOUJEO [Suspect]
     Active Substance: INSULIN GLARGINE
     Indication: TYPE 2 DIABETES MELLITUS
     Dosage: DOSE:75 UNIT(S)
     Route: 065
     Dates: start: 201508
  7. HUMALOG [Concomitant]
     Active Substance: INSULIN LISPRO
  8. SOLOSTAR [Concomitant]
     Active Substance: DEVICE
  9. TOUJEO [Suspect]
     Active Substance: INSULIN GLARGINE
     Indication: TYPE 2 DIABETES MELLITUS
     Dosage: DOSE:75 UNIT(S)
     Route: 065

REACTIONS (9)
  - Tremor [Unknown]
  - Coronary arterial stent insertion [Unknown]
  - Pyrexia [Unknown]
  - Blood glucose increased [Unknown]
  - Product use issue [Unknown]
  - Blood glucose decreased [Unknown]
  - Drug dose omission [Unknown]
  - Nasopharyngitis [Unknown]
  - Muscle twitching [Unknown]

NARRATIVE: CASE EVENT DATE: 201508
